FAERS Safety Report 7677247-4 (Version None)
Quarter: 2011Q3

REPORT INFORMATION
  Report Type: 
  Country: None (occurrence: None)
  Receive Date: 20110811
  Receipt Date: 20110801
  Transmission Date: 20111222
  Serious: Yes (Hospitalization, Other)
  Sender: FDA-Public Use
  Company Number: US-BAYER-2011-042299

PATIENT
  Age: 20 Year
  Sex: Female
  Weight: 86.168 kg

DRUGS (8)
  1. YAZ [Suspect]
     Indication: CONTRACEPTION
  2. DROSPIRENONE AND ETHINYL ESTRADIOL [Suspect]
     Indication: ACNE
     Dosage: UNK
     Dates: start: 20080101, end: 20090101
  3. DROSPIRENONE AND ETHINYL ESTRADIOL [Suspect]
     Indication: CONTRACEPTION
  4. YASMIN [Suspect]
     Indication: CONTRACEPTION
  5. YAZ [Suspect]
     Indication: ACNE
     Dosage: UNK
     Dates: start: 20090101
  6. PRILOSEC [Concomitant]
  7. YASMIN [Suspect]
     Indication: ACNE
     Dosage: UNK
     Dates: start: 20080101, end: 20090101
  8. IBUPROFEN [Concomitant]

REACTIONS (4)
  - CHOLECYSTECTOMY [None]
  - CHOLECYSTITIS ACUTE [None]
  - CHOLECYSTITIS CHRONIC [None]
  - ABDOMINAL PAIN UPPER [None]
